FAERS Safety Report 7026873-4 (Version None)
Quarter: 2010Q4

REPORT INFORMATION
  Report Type: 
  Country: None (occurrence: None)
  Receive Date: 20101004
  Receipt Date: 20100929
  Transmission Date: 20110411
  Serious: Yes (Hospitalization)
  Sender: FDA-Public Use
  Company Number: A0836245A

PATIENT
  Age: 51 Year
  Sex: Male
  Weight: 115.5 kg

DRUGS (9)
  1. AVANDIA [Suspect]
     Dosage: 8MG TWICE PER DAY
     Route: 048
     Dates: start: 20040707, end: 20080701
  2. GLYBURIDE [Concomitant]
  3. BUPROPION HCL [Concomitant]
  4. FLUNISOLIDE [Concomitant]
  5. FORMOTEROL FUMARATE [Concomitant]
  6. GABAPENTIN [Concomitant]
  7. METOPROLOL TARTRATE [Concomitant]
  8. OMEPRAZOLE [Concomitant]
  9. RANITIDINE HCL [Concomitant]

REACTIONS (3)
  - ACUTE MYOCARDIAL INFARCTION [None]
  - CORONARY ARTERY DISEASE [None]
  - PAIN [None]
